FAERS Safety Report 5579130-7 (Version None)
Quarter: 2008Q1

REPORT INFORMATION
  Report Type: 
  Country: None (occurrence: None)
  Receive Date: 20080102
  Receipt Date: 20071226
  Transmission Date: 20080703
  Serious: Yes (Hospitalization)
  Sender: FDA-Public Use
  Company Number: PHHO2007US11022

PATIENT
  Age: 84 Year
  Sex: Female
  Weight: 80 kg

DRUGS (7)
  1. EXJADE [Suspect]
     Indication: BLOOD IRON INCREASED
     Dosage: 750 MG, QD
     Route: 048
     Dates: start: 20060814
  2. MACRODANTIN [Suspect]
     Indication: URINARY TRACT INFECTION
  3. LASIX [Concomitant]
     Indication: CARDIAC FAILURE CONGESTIVE
  4. ENALAPRIL [Concomitant]
     Indication: HYPERTENSION
  5. ARANESP [Concomitant]
  6. NITRGLYCERIN TRANSDERMAL SYSTEM [Concomitant]
  7. SYNTHROID [Concomitant]

REACTIONS (5)
  - CARDIOMEGALY [None]
  - CHEST PAIN [None]
  - COMPUTERISED TOMOGRAM ABNORMAL [None]
  - COSTOCHONDRITIS [None]
  - DYSPNOEA [None]
